FAERS Safety Report 7884719-6 (Version None)
Quarter: 2011Q4

REPORT INFORMATION
  Report Type: 
  Country: None (occurrence: None)
  Receive Date: 20111102
  Receipt Date: 20111026
  Transmission Date: 20120403
  Serious: Yes (Other)
  Sender: FDA-Public Use
  Company Number: CA-AMGEN-CANSP2011055730

PATIENT
  Age: 46 Year
  Sex: Female

DRUGS (8)
  1. ANTI-THYMOCYTE GLOBULIN NOS [Suspect]
     Dosage: 6 MG/KG, UNK
  2. MYCOPHENOLATE MOFETIL [Suspect]
     Dosage: UNK
  3. RAPAMUNE [Suspect]
     Dosage: UNK
  4. PROGRAF [Suspect]
     Dosage: 2 MG, Q12H
     Route: 048
  5. ZENAPAX [Suspect]
     Dosage: UNK
     Route: 042
  6. PROGRAF [Suspect]
     Dosage: UNK
  7. ENBREL [Suspect]
     Indication: PRODUCT USED FOR UNKNOWN INDICATION
     Dosage: 26 MG, UNK
     Route: 058
  8. ENBREL [Suspect]
     Dosage: 50 MG, QD

REACTIONS (3)
  - ALOPECIA [None]
  - GRAFT DYSFUNCTION [None]
  - PNEUMONIA [None]
